FAERS Safety Report 9181906 (Version 1)
Quarter: 2013Q1

REPORT INFORMATION
  Report Type: Spontaneous
  Country: US (occurrence: US)
  Receive Date: 20130322
  Receipt Date: 20130322
  Transmission Date: 20140127
  Serious: No
  Sender: FDA-Public Use
  Company Number: US-BAYER-2013-035898

PATIENT
  Age: 39 Year
  Sex: Female

DRUGS (1)
  1. MIRENA [Suspect]
     Indication: MENORRHAGIA
     Dosage: UNK
     Dates: start: 201211

REACTIONS (5)
  - Acne [None]
  - Scar [None]
  - Hypomenorrhoea [None]
  - Menstrual disorder [None]
  - Acne [None]
